FAERS Safety Report 25433299 (Version 1)
Quarter: 2025Q2

REPORT INFORMATION
  Report Type: Spontaneous
  Country: CN (occurrence: CN)
  Receive Date: 20250613
  Receipt Date: 20250613
  Transmission Date: 20250716
  Serious: Yes (Hospitalization)
  Sender: JOHNSON AND JOHNSON
  Company Number: CN-KENVUE-20250603766

PATIENT
  Age: 75 Year
  Sex: Female
  Weight: 60 kg

DRUGS (7)
  1. ECONAZOLE NITRATE\TRIAMCINOLONE [Suspect]
     Active Substance: ECONAZOLE NITRATE\TRIAMCINOLONE
     Indication: Rash
     Dosage: UNK UNK, TWICE A DAY
     Route: 061
     Dates: start: 20250503
  2. ECONAZOLE NITRATE\TRIAMCINOLONE [Suspect]
     Active Substance: ECONAZOLE NITRATE\TRIAMCINOLONE
     Indication: Swelling
  3. ECONAZOLE NITRATE\TRIAMCINOLONE [Suspect]
     Active Substance: ECONAZOLE NITRATE\TRIAMCINOLONE
     Indication: Pain
  4. ITRACONAZOLE [Suspect]
     Active Substance: ITRACONAZOLE
     Indication: Dermatophytosis of nail
     Dosage: 200 MILLIGRAM, TWICE A DAY
     Dates: start: 20250428, end: 20250503
  5. BETAMETHASONE DIPROPIONATE\BETAMETHASONE SODIUM PHOSPHATE [Suspect]
     Active Substance: BETAMETHASONE DIPROPIONATE\BETAMETHASONE SODIUM PHOSPHATE
     Indication: Rash
     Dosage: 7 MILLIGRAM, ONCE A DAY
     Dates: start: 20250503
  6. BETAMETHASONE DIPROPIONATE\BETAMETHASONE SODIUM PHOSPHATE [Suspect]
     Active Substance: BETAMETHASONE DIPROPIONATE\BETAMETHASONE SODIUM PHOSPHATE
     Indication: Swelling
  7. BETAMETHASONE DIPROPIONATE\BETAMETHASONE SODIUM PHOSPHATE [Suspect]
     Active Substance: BETAMETHASONE DIPROPIONATE\BETAMETHASONE SODIUM PHOSPHATE
     Indication: Pain

REACTIONS (2)
  - Off label use [Unknown]
  - Vasculitis [Recovering/Resolving]

NARRATIVE: CASE EVENT DATE: 20250503
